FAERS Safety Report 14950406 (Version 1)
Quarter: 2018Q2

REPORT INFORMATION
  Report Type: Spontaneous
  Country: GB (occurrence: GB)
  Receive Date: 20180530
  Receipt Date: 20180530
  Transmission Date: 20180711
  Serious: Yes (Death)
  Sender: FDA-Public Use
  Company Number: GB-TEVA-2018-GB-899253

PATIENT
  Age: 83 Year
  Sex: Female

DRUGS (9)
  1. TRAMADOL. [Concomitant]
     Active Substance: TRAMADOL
     Route: 065
  2. ACETYLCYSTEINE. [Concomitant]
     Active Substance: ACETYLCYSTEINE
     Route: 065
  3. AMLODIPINE [Concomitant]
     Active Substance: AMLODIPINE BESYLATE
     Route: 065
  4. XARELTO [Concomitant]
     Active Substance: RIVAROXABAN
     Route: 065
  5. PARACETAMOL [Concomitant]
     Active Substance: ACETAMINOPHEN
     Route: 065
  6. AMIODARONE [Suspect]
     Active Substance: AMIODARONE
     Dosage: 200 MILLIGRAM DAILY;
     Route: 048
  7. LORAZEPAM. [Concomitant]
     Active Substance: LORAZEPAM
     Route: 065
  8. FUROSEMIDE. [Concomitant]
     Active Substance: FUROSEMIDE
     Route: 065
  9. CHLOROQUINE. [Concomitant]
     Active Substance: CHLOROQUINE
     Route: 065

REACTIONS (3)
  - Hyperthyroidism [Fatal]
  - Pulmonary oedema [Fatal]
  - Atrial fibrillation [Fatal]
